FAERS Safety Report 6230388-0 (Version None)
Quarter: 2009Q2

REPORT INFORMATION
  Report Type: 
  Country: None (occurrence: None)
  Receive Date: 20090611
  Receipt Date: 20090603
  Transmission Date: 20091009
  Serious: Yes (Death, Other)
  Sender: FDA-Public Use
  Company Number: CLOF-1000580

PATIENT
  Age: 51 Year
  Sex: Male
  Weight: 73 kg

DRUGS (2)
  1. CLOLAR [Suspect]
     Indication: ACUTE MYELOID LEUKAEMIA
     Dosage: 54 MG, QDX5, INTRAVENOUS
     Route: 042
     Dates: start: 20090402, end: 20090406
  2. CAMPATH [Suspect]
     Indication: ACUTE MYELOID LEUKAEMIA
     Dosage: 20 MG, QDX5, INTRAVENOUS
     Route: 042
     Dates: start: 20090402, end: 20090406

REACTIONS (14)
  - ASCITES [None]
  - CARDIAC ARREST [None]
  - ELECTROCARDIOGRAM QRS COMPLEX ABNORMAL [None]
  - FALL [None]
  - HYPOTENSION [None]
  - INTERNATIONAL NORMALISED RATIO INCREASED [None]
  - LUNG DISORDER [None]
  - MYOCARDIAL INFARCTION [None]
  - PERICARDIAL EFFUSION [None]
  - PLEURAL EFFUSION [None]
  - PROCEDURAL COMPLICATION [None]
  - PROTHROMBIN TIME PROLONGED [None]
  - SEPSIS [None]
  - SINUS TACHYCARDIA [None]
